FAERS Safety Report 6039724-1 (Version None)
Quarter: 2009Q1

REPORT INFORMATION
  Report Type: 
  Country: None (occurrence: None)
  Receive Date: 20090116
  Receipt Date: 20090107
  Transmission Date: 20090719
  Serious: Yes (Other)
  Sender: FDA-Public Use
  Company Number: PHEH2009US00517

PATIENT
  Sex: Male

DRUGS (4)
  1. ZOMETA [Suspect]
     Indication: METASTASES TO BONE
     Dosage: 4 MG, QMO
     Route: 042
     Dates: start: 20040601, end: 20070601
  2. ZOMETA [Suspect]
     Indication: PROSTATE CANCER
  3. ASPIRIN [Concomitant]
  4. LUPRON [Concomitant]

REACTIONS (2)
  - BONE DISORDER [None]
  - TOOTH EXTRACTION [None]
